FAERS Safety Report 6544540-8 (Version None)
Quarter: 2010Q1

REPORT INFORMATION
  Report Type: 
  Country: None (occurrence: None)
  Receive Date: 20100121
  Receipt Date: 20100113
  Transmission Date: 20100710
  Serious: Yes (Life-Threatening)
  Sender: FDA-Public Use
  Company Number: JP-BAYER-200914932BYL

PATIENT
  Age: 81 Year
  Sex: Female

DRUGS (8)
  1. ADALAT [Suspect]
     Indication: HYPERTENSION
     Dosage: TOTAL DAILY DOSE: 10 MG  UNIT DOSE: 10 MG
     Route: 048
     Dates: start: 20080918, end: 20080918
  2. ADALAT [Suspect]
     Indication: HYPERTENSION
     Dosage: TOTAL DAILY DOSE: 10 MG  UNIT DOSE: 10 MG
     Route: 048
     Dates: start: 20080919, end: 20080923
  3. RENIVACE [Suspect]
     Indication: HYPERTENSION
     Dosage: TOTAL DAILY DOSE: 5 MG  UNIT DOSE: 5 MG
     Route: 048
     Dates: end: 20080924
  4. FLUITRAN [Suspect]
     Indication: HYPERTENSION
     Dosage: TOTAL DAILY DOSE: 2 MG  UNIT DOSE: 2 MG
     Route: 048
     Dates: end: 20080924
  5. LENDORMIN [Suspect]
     Indication: INSOMNIA
     Dosage: TOTAL DAILY DOSE: 0.25 MG  UNIT DOSE: 0.25 MG
     Route: 048
     Dates: start: 20080919, end: 20080923
  6. SOSEGON [Suspect]
     Indication: BACK PAIN
     Route: 030
     Dates: start: 20080919, end: 20080921
  7. NIPOLAZIN [Concomitant]
     Dosage: TOTAL DAILY DOSE: 3 MG  UNIT DOSE: 3 MG
     Route: 048
     Dates: start: 20080911, end: 20080923
  8. CEPHADOL [Concomitant]
     Route: 048
     Dates: start: 20080911, end: 20080923

REACTIONS (1)
  - TRANSIENT ISCHAEMIC ATTACK [None]
